FAERS Safety Report 19185362 (Version 3)
Quarter: 2021Q3

REPORT INFORMATION
  Report Type: Report from Study
  Country: US (occurrence: US)
  Receive Date: 20210427
  Receipt Date: 20210706
  Transmission Date: 20211014
  Serious: Yes (Hospitalization, Other)
  Sender: FDA-Public Use
  Company Number: US-GILEAD-2021-0525791

PATIENT
  Sex: Female

DRUGS (13)
  1. AZTREONAM LYSINE [Suspect]
     Active Substance: AZTREONAM LYSINE
     Indication: CYSTIC FIBROSIS LUNG
     Dosage: 75 MG (1 VIAL), TID, 28 DAYS ON, 28 DAYS OFF
     Route: 055
  2. GABAPENTIN. [Concomitant]
     Active Substance: GABAPENTIN
  3. HYPERSAL [Concomitant]
     Active Substance: SODIUM CHLORIDE
  4. AZTREONAM LYSINE [Suspect]
     Active Substance: AZTREONAM LYSINE
     Indication: CYSTIC FIBROSIS
  5. KLONOPIN [Concomitant]
     Active Substance: CLONAZEPAM
  6. MAGNESIUM OXIDE. [Concomitant]
     Active Substance: MAGNESIUM OXIDE
  7. TRAZODONE [Concomitant]
     Active Substance: TRAZODONE HYDROCHLORIDE
  8. COLISTIN SULFATE [Concomitant]
     Active Substance: COLISTIN SULFATE
  9. PULMOZYME [Concomitant]
     Active Substance: DORNASE ALFA
  10. ZENPEP [Concomitant]
     Active Substance: PANCRELIPASE AMYLASE\PANCRELIPASE LIPASE\PANCRELIPASE PROTEASE
  11. ALBUTEROL SULFATE. [Concomitant]
     Active Substance: ALBUTEROL SULFATE
  12. CLOMIPRAMINE HCL [Concomitant]
     Active Substance: CLOMIPRAMINE
  13. TRIKAFTA [Concomitant]
     Active Substance: ELEXACAFTOR\IVACAFTOR\TEZACAFTOR

REACTIONS (3)
  - Condition aggravated [Not Recovered/Not Resolved]
  - Infection [Unknown]
  - Cystic fibrosis [Unknown]
